FAERS Safety Report 17140459 (Version 3)
Quarter: 2019Q4

REPORT INFORMATION
  Report Type: Spontaneous
  Country: BR (occurrence: BR)
  Receive Date: 20191211
  Receipt Date: 20191227
  Transmission Date: 20200122
  Serious: Yes (Death, Other)
  Sender: FDA-Public Use
  Company Number: BR-009507513-1912BRA004190

PATIENT
  Age: 65 Year
  Sex: Male
  Weight: 75.6 kg

DRUGS (3)
  1. KEYTRUDA [Suspect]
     Active Substance: PEMBROLIZUMAB
     Dosage: 200 MILLIGRAM, CYCLE PERFORMED EACH 21 DAYS, CYCLE 2, D1
     Dates: start: 20191011
  2. OPHTHALMIC PREPARATIONS (UNSPECIFIED) [Concomitant]
     Active Substance: UNSPECIFIED INGREDIENT
     Dosage: UNK
     Dates: start: 2018
  3. CHLORINE [Concomitant]
     Active Substance: CHLORINE
     Dosage: 250 MILLILITER

REACTIONS (3)
  - Asthenia [Not Recovered/Not Resolved]
  - Hyperbilirubinaemia [Not Recovered/Not Resolved]
  - Death [Fatal]

NARRATIVE: CASE EVENT DATE: 20191101
